FAERS Safety Report 20406818 (Version 1)
Quarter: 2022Q1

REPORT INFORMATION
  Report Type: Spontaneous
  Country: JP (occurrence: JP)
  Receive Date: 20220131
  Receipt Date: 20220131
  Transmission Date: 20220424
  Serious: Yes (Hospitalization, Other)
  Sender: FDA-Public Use
  Company Number: JP-MSD-M2022-02829

PATIENT
  Age: 35 Year
  Sex: Female

DRUGS (5)
  1. KEYTRUDA [Suspect]
     Active Substance: PEMBROLIZUMAB
     Indication: Lip and/or oral cavity cancer
     Dosage: 200 MILLIGRAM, Q3W
     Route: 041
     Dates: start: 202111
  2. FLUOROURACIL [Suspect]
     Active Substance: FLUOROURACIL
     Indication: Lip and/or oral cavity cancer
     Dosage: UNK
     Route: 041
     Dates: end: 2021
  3. FLUOROURACIL [Suspect]
     Active Substance: FLUOROURACIL
     Dosage: THE DOSE WAS DECREDSED 20%
     Route: 041
     Dates: start: 2021
  4. CISPLATIN [Suspect]
     Active Substance: CISPLATIN
     Indication: Lip and/or oral cavity cancer
     Dosage: UNK
     Route: 041
     Dates: end: 2021
  5. CISPLATIN [Suspect]
     Active Substance: CISPLATIN
     Dosage: THE DOSE WAS DECREDSED 20%
     Route: 041
     Dates: start: 2021

REACTIONS (1)
  - Febrile neutropenia [Recovered/Resolved]

NARRATIVE: CASE EVENT DATE: 20211101
